FAERS Safety Report 6573236-1 (Version None)
Quarter: 2010Q1

REPORT INFORMATION
  Report Type: 
  Country: None (occurrence: None)
  Receive Date: 20100208
  Receipt Date: 20100127
  Transmission Date: 20100710
  Serious: Yes (Other)
  Sender: FDA-Public Use
  Company Number: JP-B.I. PHARMACEUTICALS,INC./RIDGEFIELD-2010-DE-00483GD

PATIENT
  Age: 26 Year
  Sex: Male

DRUGS (1)
  1. ORCIPRENALIN [Suspect]

REACTIONS (3)
  - CARDIAC FAILURE [None]
  - PALPITATIONS [None]
  - VENTRICULAR TACHYCARDIA [None]
